FAERS Safety Report 6523898-X (Version None)
Quarter: 2009Q4

REPORT INFORMATION
  Report Type: 
  Country: None (occurrence: None)
  Receive Date: 20091230
  Receipt Date: 20091230
  Transmission Date: 20100525
  Serious: Yes (Hospitalization)
  Sender: FDA-Public Use
  Company Number: None

PATIENT
  Age: 21 Year
  Sex: Male
  Weight: 89.4 kg

DRUGS (3)
  1. ZOLPIDEM TARTRATE [Suspect]
     Indication: SLEEP DISORDER
     Dosage: 50 MG X 1
     Dates: start: 20091013
  2. RITALIN [Suspect]
     Indication: NARCOLEPSY
     Dosage: 35MG X 1
     Dates: start: 20091013
  3. PROVIGIL [Suspect]
     Indication: NARCOLEPSY
     Dosage: 600MG X 1
     Dates: start: 20091013

REACTIONS (4)
  - ACCIDENTAL EXPOSURE [None]
  - DISORIENTATION [None]
  - HEART RATE INCREASED [None]
  - PSYCHOTIC DISORDER [None]
